FAERS Safety Report 7240186-7 (Version None)
Quarter: 2011Q1

REPORT INFORMATION
  Report Type: 
  Country: None (occurrence: None)
  Receive Date: 20110124
  Receipt Date: 20110111
  Transmission Date: 20110831
  Serious: Yes (Hospitalization, Other)
  Sender: FDA-Public Use
  Company Number: US-ELI_LILLY_AND_COMPANY-US201101002456

PATIENT
  Age: 101 Year
  Sex: Female

DRUGS (5)
  1. LASIX [Concomitant]
  2. NEURONTIN [Concomitant]
  3. MIRALAX [Concomitant]
  4. ZOLOFT [Concomitant]
  5. CYMBALTA [Suspect]
     Indication: DIABETIC NEUROPATHY

REACTIONS (1)
  - RENAL FAILURE ACUTE [None]
